FAERS Safety Report 8499057-0 (Version None)
Quarter: 2012Q3

REPORT INFORMATION
  Report Type: 
  Country: None (occurrence: None)
  Receive Date: 20120710
  Receipt Date: 20120629
  Transmission Date: 20120928
  Serious: Yes (Other)
  Sender: FDA-Public Use
  Company Number: BE-009507513-1206USA03284

PATIENT

DRUGS (1)
  1. FOSAVANCE [Suspect]
     Route: 048
     Dates: start: 20070201, end: 20120530

REACTIONS (2)
  - RHABDOMYOLYSIS [None]
  - WEIGHT DECREASED [None]
